FAERS Safety Report 6268317-6 (Version None)
Quarter: 2009Q3

REPORT INFORMATION
  Report Type: 
  Country: None (occurrence: None)
  Receive Date: 20090715
  Receipt Date: 20090706
  Transmission Date: 20100115
  Serious: Yes (Hospitalization, Other)
  Sender: FDA-Public Use
  Company Number: GB-JNJFOC-20090307423

PATIENT
  Age: 69 Year
  Sex: Female
  Weight: 74 kg

DRUGS (10)
  1. REMICADE [Suspect]
     Indication: RHEUMATOID ARTHRITIS
     Route: 042
  2. BENDROFLUAZIDE [Concomitant]
  3. CAPHALEXIN [Concomitant]
  4. ACETAMINOPHEN WITH PROPOXYPHENE HCL TAB [Concomitant]
  5. EVISTA [Concomitant]
  6. LANSOPRAZOLE [Concomitant]
  7. LOSARTAN POTASSIUM [Concomitant]
  8. NAPROXEN [Concomitant]
  9. SALIVA ORTHANA [Concomitant]
  10. METHOTREXATE [Concomitant]

REACTIONS (1)
  - THYROID CANCER [None]
